FAERS Safety Report 9422309 (Version 1)
Quarter: 2013Q3

REPORT INFORMATION
  Report Type: Spontaneous
  Country: US (occurrence: US)
  Receive Date: 20130726
  Receipt Date: 20130726
  Transmission Date: 20140515
  Serious: Yes (Hospitalization, Other)
  Sender: FDA-Public Use
  Company Number: US-AMGEN-USASP2013052099

PATIENT
  Age: 52 Year
  Sex: Female

DRUGS (1)
  1. ENBREL [Suspect]
     Indication: RHEUMATOID ARTHRITIS
     Dosage: 50 MG, QWK
     Route: 065
     Dates: start: 19990101

REACTIONS (11)
  - Benign pancreatic neoplasm [Recovered/Resolved]
  - Procedural pain [Recovered/Resolved]
  - Exostosis [Recovered/Resolved]
  - Hypoaesthesia [Recovered/Resolved]
  - Staphylococcal infection [Recovered/Resolved]
  - Paraesthesia [Recovered/Resolved]
  - Muscle spasms [Not Recovered/Not Resolved]
  - Pain in extremity [Not Recovered/Not Resolved]
  - Influenza [Not Recovered/Not Resolved]
  - Sinusitis [Not Recovered/Not Resolved]
  - Infection [Not Recovered/Not Resolved]
